FAERS Safety Report 8769546 (Version 2)
Quarter: 2012Q4

REPORT INFORMATION
  Report Type: 
  Country: US (occurrence: US)
  Receive Date: 20120905
  Receipt Date: 20120921
  Transmission Date: 20130627
  Serious: No
  Sender: FDA-Public Use
  Company Number: US-PFIZER INC-2012214959

PATIENT
  Age: 35 Year
  Sex: Female
  Weight: 91.61 kg

DRUGS (7)
  1. CHANTIX [Suspect]
     Indication: SMOKING CESSATION THERAPY
     Dosage: 0.5 mg, daily
     Route: 048
     Dates: start: 2011
  2. CHANTIX [Suspect]
     Indication: SMOKING CESSATION THERAPY
     Dosage: UNK
     Route: 048
     Dates: end: 201204
  3. METFORMIN [Concomitant]
     Indication: DIABETES MELLITUS
     Dosage: 1000 mg, 2x/day
  4. ABILIFY [Concomitant]
     Dosage: 2 mg, 1x/day
     Route: 048
  5. MOBIC [Concomitant]
     Dosage: 50 mg, 1x/day
  6. VALIUM [Concomitant]
     Dosage: 2.5 mg, 1x/day in the evening
     Route: 048
  7. NORCO [Concomitant]
     Dosage: 3.75/162.5, 1x/day
     Route: 048

REACTIONS (2)
  - Abdominal pain upper [Recovered/Resolved]
  - Vomiting [Recovered/Resolved]
